FAERS Safety Report 25182278 (Version 1)
Quarter: 2025Q2

REPORT INFORMATION
  Report Type: Spontaneous
  Country: US (occurrence: US)
  Receive Date: 20250410
  Receipt Date: 20250410
  Transmission Date: 20250716
  Serious: No
  Sender: KINIKSA PHARMACEUTICALS
  Company Number: US-Kiniksa Pharmaceuticals Ltd.-2024KPU000864

PATIENT
  Age: 82 Year
  Sex: Female

DRUGS (2)
  1. ARCALYST [Suspect]
     Active Substance: RILONACEPT
     Indication: Pericarditis
     Route: 058
     Dates: start: 202404
  2. ARCALYST [Suspect]
     Active Substance: RILONACEPT
     Route: 058
     Dates: start: 202404

REACTIONS (5)
  - Malaise [Unknown]
  - Loss of personal independence in daily activities [Unknown]
  - Depressed mood [Unknown]
  - Asthenia [Unknown]
  - Urinary tract infection [Not Recovered/Not Resolved]

NARRATIVE: CASE EVENT DATE: 20240401
